FAERS Safety Report 9032532 (Version 2)
Quarter: 2013Q1

REPORT INFORMATION
  Report Type: Spontaneous
  Country: BR (occurrence: BR)
  Receive Date: 20130125
  Receipt Date: 20130315
  Transmission Date: 20140127
  Serious: Yes (Other)
  Sender: FDA-Public Use
  Company Number: BR-PFIZER INC-2013022171

PATIENT
  Age: 54 Year
  Sex: Male
  Weight: 86 kg

DRUGS (6)
  1. VIAGRA [Suspect]
     Indication: ERECTILE DYSFUNCTION
     Dosage: 50 MG, SINGLE DOSE
     Route: 048
     Dates: start: 20070117
  2. ZOMETA [Concomitant]
     Indication: HEPATIC NEOPLASM
     Dosage: ONE INJECTION EVERY 28 DAYS
     Route: 042
  3. ZOMETA [Concomitant]
     Indication: BONE CANCER
  4. LOSARTAN POTASSIUM [Concomitant]
     Indication: BLOOD PRESSURE INCREASED
     Dosage: 1 TABLET (20 MG), 2X/DAY (IN THE MORNING AND AT NIGHT)
  5. TRAMAL [Concomitant]
     Indication: PAIN
     Dosage: 2 TABLETS (50MG) AS NEEDED
  6. NOVALGIN [Concomitant]
     Indication: PAIN
     Dosage: 1 G, AS NEEDED

REACTIONS (2)
  - Diabetes mellitus [Unknown]
  - Drug ineffective [Unknown]
